FAERS Safety Report 7706942-3 (Version None)
Quarter: 2011Q3

REPORT INFORMATION
  Report Type: 
  Country: None (occurrence: None)
  Receive Date: 20110824
  Receipt Date: 20110818
  Transmission Date: 20111222
  Serious: Yes (Hospitalization)
  Sender: FDA-Public Use
  Company Number: SG-GLAXOSMITHKLINE-B0740950A

PATIENT
  Sex: Female

DRUGS (3)
  1. LAPATINIB [Suspect]
     Indication: BREAST CANCER
     Dosage: 750MG PER DAY
     Route: 048
     Dates: start: 20110727
  2. CARBOPLATIN [Suspect]
     Indication: BREAST CANCER
     Dosage: 238MG CYCLIC
     Route: 042
     Dates: start: 20110727
  3. PACLITAXEL [Suspect]
     Indication: BREAST CANCER
     Dosage: 115MG WEEKLY
     Route: 042
     Dates: start: 20110727

REACTIONS (2)
  - FEBRILE NEUTROPENIA [None]
  - UPPER RESPIRATORY TRACT INFECTION [None]
